FAERS Safety Report 5628187-3 (Version None)
Quarter: 2008Q1

REPORT INFORMATION
  Report Type: 
  Country: None (occurrence: None)
  Receive Date: 20080215
  Receipt Date: 20080204
  Transmission Date: 20080703
  Serious: Yes (Congenital Anomaly)
  Sender: FDA-Public Use
  Company Number: DK-GILEAD-2008-0015145

PATIENT
  Sex: Male
  Weight: 2.82 kg

DRUGS (2)
  1. VIREAD [Suspect]
     Route: 064
     Dates: start: 20070501
  2. LAMIVUDINE [Concomitant]
     Route: 064
     Dates: start: 20070501

REACTIONS (1)
  - TALIPES [None]
